FAERS Safety Report 9495028 (Version 1)
Quarter: 2013Q3

REPORT INFORMATION
  Report Type: Spontaneous
  Country: US (occurrence: None)
  Receive Date: 20130828
  Receipt Date: 20130828
  Transmission Date: 20140515
  Serious: Yes (Hospitalization)
  Sender: FDA-Public Use
  Company Number: JPI-P-034643

PATIENT
  Age: 45 Year
  Sex: Male

DRUGS (1)
  1. XYREM [Suspect]
     Indication: INSOMNIA
     Dosage: 6GM (3GM, 2 IN 1D) ORAL
     Route: 048
     Dates: start: 20080125, end: 2008

REACTIONS (1)
  - Drug abuse [None]
